FAERS Safety Report 5086316-7 (Version None)
Quarter: 2006Q3

REPORT INFORMATION
  Report Type: 
  Country: None (occurrence: None)
  Receive Date: 20060703
  Receipt Date: 20060315
  Transmission Date: 20061208
  Serious: No
  Sender: FDA-Public Use
  Company Number: 2006S1002251

PATIENT
  Age: 99 Year
  Sex: Female

DRUGS (8)
  1. CLOZAPINE [Suspect]
     Dosage: 100 MG; TID; ORAL
     Route: 048
  2. POTASSIUM [Concomitant]
  3. MEMANTINE HCL [Concomitant]
  4. VALPROATE SODIUM [Concomitant]
  5. SERTRALINE [Concomitant]
  6. CARBIDOPA AND LEVODOPA [Concomitant]
  7. FUROSEMIDE [Concomitant]
  8. ZIPRASIDONE HCL [Concomitant]

REACTIONS (1)
  - GRANULOCYTOPENIA [None]
